FAERS Safety Report 4848987-7 (Version None)
Quarter: 2005Q4

REPORT INFORMATION
  Report Type: 
  Country: None (occurrence: None)
  Receive Date: 20051122
  Receipt Date: 20041006
  Transmission Date: 20060501
  Serious: Yes (Hospitalization)
  Sender: FDA-Public Use
  Company Number: 2004-10-0002

PATIENT
  Sex: Male

DRUGS (1)
  1. PROGLYCEM [Suspect]
     Indication: HYPERINSULINAEMIA
     Dosage: ORAL
     Route: 048

REACTIONS (1)
  - LYMPHADENOPATHY [None]
